FAERS Safety Report 9650540 (Version 1)
Quarter: 2013Q4

REPORT INFORMATION
  Report Type: Spontaneous
  Country: US (occurrence: US)
  Receive Date: 20131029
  Receipt Date: 20131029
  Transmission Date: 20140711
  Serious: Yes (Death)
  Sender: FDA-Public Use
  Company Number: US-BIOGENIDEC-2013BI101101

PATIENT
  Age: 36 Year
  Sex: Female

DRUGS (1)
  1. TYSABRI [Suspect]
     Indication: CROHN^S DISEASE
     Route: 042
     Dates: start: 20100401, end: 20100401

REACTIONS (4)
  - Congestive cardiomyopathy [Fatal]
  - Brain injury [Fatal]
  - Gastrointestinal disorder [Fatal]
  - Cardiogenic shock [Fatal]
